FAERS Safety Report 9601880 (Version 2)
Quarter: 2013Q4

REPORT INFORMATION
  Report Type: Spontaneous
  Country: TW (occurrence: None)
  Receive Date: 20131002
  Receipt Date: 20131003
  Transmission Date: 20140711
  Serious: Yes (Hospitalization)
  Sender: FDA-Public Use
  Company Number: SYM-2013-10994

PATIENT
  Age: 52 Year
  Sex: Male

DRUGS (9)
  1. DILTIAZEM [Suspect]
     Indication: PRODUCT USED FOR UNKNOWN INDICATION
     Dosage: 30 MG, 2 IN 1 D, ORAL
     Route: 048
     Dates: start: 20051129, end: 20060814
  2. SIMVASTATIN [Suspect]
     Indication: HYPERLIPIDAEMIA
     Dosage: 40 MG, AFTER MEALS AND AT BEDTIME, ORAL
     Route: 048
     Dates: start: 20051129, end: 20060814
  3. ROSUVASTATIN [Suspect]
     Indication: HYPERLIPIDAEMIA
     Route: 048
     Dates: start: 20060714, end: 20060814
  4. EZETIMIBE [Concomitant]
  5. CLOPIDOGREL (CLOPIDOGREL) (CLOPIDOGREL) [Concomitant]
  6. IRBESARTAN (IRBESARTAN) (IRBESARTAN) [Concomitant]
  7. FUROSEMIDE (FUROSEMIDE) (FUROSEMIDE) [Concomitant]
  8. SENNOSIDE B (SENNOSIDE B) (SENNOSIDE B) [Concomitant]
  9. INSULIN ASPART (INSULIN ASPART) (INSULIN ASPART) [Concomitant]

REACTIONS (4)
  - Drug interaction [None]
  - Rhabdomyolysis [None]
  - Renal failure acute [None]
  - Haemodialysis [None]
